FAERS Safety Report 10768857 (Version 1)
Quarter: 2015Q1

REPORT INFORMATION
  Report Type: Spontaneous
  Country: UG (occurrence: None)
  Receive Date: 20150204
  Receipt Date: 20150204
  Transmission Date: 20150721
  Serious: Yes (Death, Other)
  Sender: FDA-Public Use
  Company Number: 2015HINLIT0051

PATIENT
  Age: 7 Month

DRUGS (3)
  1. ZIDOVUDINE (ZIDOVUDINE) [Suspect]
     Active Substance: ZIDOVUDINE
     Indication: HIV INFECTION
  2. STAVUDINE (STAVUDINE) [Suspect]
     Active Substance: STAVUDINE
  3. ABACAVIR (ABACAVIR) [Suspect]
     Active Substance: ABACAVIR

REACTIONS (2)
  - Treatment failure [None]
  - Immune reconstitution inflammatory syndrome [None]
